FAERS Safety Report 6560906-4 (Version None)
Quarter: 2010Q1

REPORT INFORMATION
  Report Type: 
  Country: None (occurrence: None)
  Receive Date: 20100129
  Receipt Date: 20090924
  Transmission Date: 20100710
  Serious: No
  Sender: FDA-Public Use
  Company Number: US-ABBOTT-09P-163-0599525-00

PATIENT
  Sex: Female
  Weight: 68.1 kg

DRUGS (3)
  1. HUMIRA [Suspect]
     Indication: LEUKOCYTOCLASTIC VASCULITIS
     Dates: start: 20090701
  2. CELLCEPT [Concomitant]
     Indication: LEUKOCYTOCLASTIC VASCULITIS
  3. PREDNISONE [Concomitant]
     Indication: LEUKOCYTOCLASTIC VASCULITIS

REACTIONS (2)
  - DRUG DOSE OMISSION [None]
  - TOOTH FRACTURE [None]
